FAERS Safety Report 17792128 (Version 1)
Quarter: 2020Q2

REPORT INFORMATION
  Report Type: Spontaneous
  Country: US (occurrence: US)
  Receive Date: 20200515
  Receipt Date: 20200515
  Transmission Date: 20200714
  Serious: Yes (Other)
  Sender: FDA-Public Use
  Company Number: None

PATIENT
  Age: 59 Year
  Sex: Female
  Weight: 77 kg

DRUGS (9)
  1. CEFEPIME 1 G IVPB Q12HR [Concomitant]
  2. LORAZEPAM 0.5 MG PO TID PRN ANXIETY [Concomitant]
  3. ASCORBIC ACID 1500 MG PO DAILY [Concomitant]
  4. ONDANSETRON 4 MG IV PUSH Q6HR PRN N/V [Concomitant]
  5. ZINC SULFATE 220 MG PO DAILY [Concomitant]
  6. L-THYROXINE 175 MCG PO DAILY [Concomitant]
  7. VANCOMYCIN 1.5 G IVPB Q12HR [Concomitant]
  8. REMDESIVIR. [Suspect]
     Active Substance: REMDESIVIR
     Indication: COVID-19
     Dosage: ?          OTHER FREQUENCY:X1 (LOADING DOSE);?
     Route: 041
     Dates: start: 20200514
  9. APAP 500 MG PO Q6HR PRN PAIN/FEVER [Concomitant]

REACTIONS (3)
  - Infusion related reaction [None]
  - Hypotension [None]
  - Chills [None]

NARRATIVE: CASE EVENT DATE: 20200514
